FAERS Safety Report 16789386 (Version 1)
Quarter: 2019Q3

REPORT INFORMATION
  Report Type: Spontaneous
  Country: US (occurrence: US)
  Receive Date: 20190910
  Receipt Date: 20190910
  Transmission Date: 20191005
  Serious: Yes (Other)
  Sender: FDA-Public Use
  Company Number: US-DRREDDYS-USA/USA/19/0113890

PATIENT
  Sex: Female

DRUGS (1)
  1. NITROGLYCERIN. [Suspect]
     Active Substance: NITROGLYCERIN
     Indication: CHEST PAIN
     Route: 060

REACTIONS (4)
  - Product taste abnormal [Recovered/Resolved]
  - Product dose omission [Not Recovered/Not Resolved]
  - Drug ineffective [Unknown]
  - Nausea [Recovered/Resolved]
